FAERS Safety Report 12171953 (Version 1)
Quarter: 2016Q1

REPORT INFORMATION
  Report Type: Spontaneous
  Country: US (occurrence: US)
  Receive Date: 20160311
  Receipt Date: 20160311
  Transmission Date: 20160526
  Serious: No
  Sender: FDA-Public Use
  Company Number: US-009507513-1603USA001108

PATIENT
  Sex: Female

DRUGS (3)
  1. JANUVIA [Suspect]
     Active Substance: SITAGLIPTIN PHOSPHATE
     Indication: TYPE 2 DIABETES MELLITUS
     Dosage: 100 MG, QD
     Route: 048
  2. NADOLOL. [Concomitant]
     Active Substance: NADOLOL
     Dosage: UNK
  3. INVOKANA [Suspect]
     Active Substance: CANAGLIFLOZIN
     Dosage: UNK

REACTIONS (3)
  - Rhinorrhoea [Recovering/Resolving]
  - Glycosylated haemoglobin increased [Recovering/Resolving]
  - Adverse event [Recovered/Resolved]
